FAERS Safety Report 8553984-4 (Version None)
Quarter: 2012Q3

REPORT INFORMATION
  Report Type: 
  Country: None (occurrence: None)
  Receive Date: 20120731
  Receipt Date: 20120716
  Transmission Date: 20120928
  Serious: Yes (Other)
  Sender: FDA-Public Use
  Company Number: TR-WATSON-2012-12933

PATIENT
  Age: 8 Year
  Sex: Female

DRUGS (4)
  1. CARBOPLATIN [Suspect]
     Indication: NEUROBLASTOMA
     Dosage: 300 MG/M2, DAILY
     Route: 065
  2. IOBENGUANE (123 I) [Suspect]
     Indication: NEUROBLASTOMA
     Dosage: 100 MCI, DAILY
     Route: 065
  3. MELPHALAN HYDROCHLORIDE [Suspect]
     Indication: NEUROBLASTOMA
     Dosage: 45 MG/M2, DAILY
     Route: 065
  4. ETOPOSIDE [Suspect]
     Indication: NEUROBLASTOMA
     Dosage: 200 MG/M2, DAILY
     Route: 065

REACTIONS (3)
  - HAEMORRHAGE INTRACRANIAL [None]
  - GRAFT VERSUS HOST DISEASE [None]
  - HYPERTENSION [None]
